FAERS Safety Report 10062205 (Version 2)
Quarter: 2014Q2

REPORT INFORMATION
  Report Type: Spontaneous
  Country: US (occurrence: US)
  Receive Date: 20140407
  Receipt Date: 20140407
  Transmission Date: 20141212
  Serious: Yes (Other)
  Sender: FDA-Public Use
  Company Number: 2014SP000776

PATIENT
  Age: 49 Year
  Sex: Male

DRUGS (2)
  1. METHOTREXATE [Suspect]
     Indication: PRODUCT USED FOR UNKNOWN INDICATION
     Route: 058
     Dates: start: 201211
  2. ENBREL [Suspect]
     Indication: RHEUMATOID ARTHRITIS
     Route: 058
     Dates: start: 20130601

REACTIONS (10)
  - Loss of consciousness [Recovered/Resolved]
  - Unresponsive to stimuli [Recovered/Resolved]
  - Amnesia [Recovered/Resolved]
  - Muscle rigidity [Recovered/Resolved]
  - Eye disorder [Recovered/Resolved]
  - Drooling [Recovered/Resolved]
  - Joint contracture [Unknown]
  - Intervertebral disc protrusion [Not Recovered/Not Resolved]
  - Loss of consciousness [Unknown]
  - Convulsion [Unknown]
